FAERS Safety Report 9395748 (Version 1)
Quarter: 2013Q3

REPORT INFORMATION
  Report Type: Spontaneous
  Country: FR (occurrence: FR)
  Receive Date: 20130711
  Receipt Date: 20130711
  Transmission Date: 20140515
  Serious: Yes (Hospitalization)
  Sender: FDA-Public Use
  Company Number: FR-ALLERGAN-1310014US

PATIENT
  Age: 78 Year
  Sex: Female

DRUGS (8)
  1. TROSPIUM CHLORIDE UNK [Suspect]
     Indication: NEUROGENIC BLADDER
     Dosage: 1 DF, QD
     Route: 048
     Dates: start: 201209
  2. TRAMADOL HYDROCHLORIDE [Suspect]
     Indication: PAIN
     Dosage: 2 DF, QD
     Route: 048
  3. MOTILIUM [Suspect]
     Indication: NAUSEA
     Dosage: 3 DF, QD
     Route: 048
     Dates: start: 201209
  4. NOCTAMIDE [Concomitant]
     Dosage: 2 MG, UNK
  5. SEROPLEX [Concomitant]
  6. DOLIPRANE [Concomitant]
  7. LEVOTHYROX [Concomitant]
     Dosage: 100 ?G, UNK
  8. CRESTOR [Concomitant]
     Dosage: 20 MG, UNK

REACTIONS (3)
  - Altered state of consciousness [Recovered/Resolved]
  - Dysarthria [Recovered/Resolved]
  - Somnolence [Recovered/Resolved]
